FAERS Safety Report 7249438-8 (Version None)
Quarter: 2011Q1

REPORT INFORMATION
  Report Type: 
  Country: None (occurrence: None)
  Receive Date: 20110128
  Receipt Date: 20101206
  Transmission Date: 20110831
  Serious: Yes (Other)
  Sender: FDA-Public Use
  Company Number: US-BAYER-201023225NA

PATIENT
  Sex: Male
  Weight: 95.238 kg

DRUGS (16)
  1. ZITHROMAX [Concomitant]
  2. AVELOX [Suspect]
     Indication: PNEUMONIA
     Dosage: 400 MG, QD
     Dates: start: 20071212, end: 20071222
  3. ATENOLOL [Concomitant]
     Dosage: 100 MG, QD
  4. LISINOPRIL AND HYDROCHLOROTHIAZIDE [Concomitant]
     Dosage: UNK UNK, QD
  5. PREDNISONE [Concomitant]
  6. FISH OIL [Concomitant]
  7. AVELOX [Suspect]
     Indication: GASTROINTESTINAL INFECTION
     Dosage: 400 MG, QD
     Dates: start: 20091125, end: 20091128
  8. AVELOX [Suspect]
     Indication: PARONYCHIA
  9. SYMBICORT [Concomitant]
  10. MULTIPLE VITAMINS [Concomitant]
  11. SAW PALMETTO [Concomitant]
  12. ALBUTEROL [Concomitant]
  13. GLUCOSAMINE [Concomitant]
  14. AVELOX [Suspect]
     Indication: BRONCHITIS
  15. LIPITOR [Concomitant]
     Dosage: 10 MG, QD
  16. PRILOSEC [Concomitant]
     Dosage: UNK UNK, QD

REACTIONS (17)
  - COUGH [None]
  - PNEUMONITIS [None]
  - RASH [None]
  - DIARRHOEA [None]
  - RESPIRATORY TRACT INFECTION [None]
  - TENDONITIS [None]
  - ARTHRALGIA [None]
  - PRODUCTIVE COUGH [None]
  - DIAPHRAGMATIC PARALYSIS [None]
  - PAIN [None]
  - FATIGUE [None]
  - ERYTHEMA [None]
  - MUSCULOSKELETAL PAIN [None]
  - BRONCHITIS [None]
  - PYREXIA [None]
  - ATELECTASIS [None]
  - DYSPNOEA [None]
